FAERS Safety Report 9194322 (Version 1)
Quarter: 2013Q1

REPORT INFORMATION
  Report Type: Spontaneous
  Country: US (occurrence: US)
  Receive Date: 20130325
  Receipt Date: 20130328
  Transmission Date: 20140127
  Serious: Yes (Other)
  Sender: FDA-Public Use
  Company Number: US-RB-051365-13

PATIENT
  Age: 39 Year
  Sex: Male

DRUGS (3)
  1. CEPACOL [Suspect]
     Indication: OROPHARYNGEAL PAIN
     Dosage: ONE LOZENGE.
     Route: 048
     Dates: start: 20130311
  2. CEPACOL [Suspect]
  3. FOLIC ACID [Concomitant]
     Indication: PRODUCT USED FOR UNKNOWN INDICATION

REACTIONS (3)
  - Eyelid oedema [Recovered/Resolved]
  - Visual impairment [Recovered/Resolved]
  - Swollen tongue [Recovered/Resolved]
